FAERS Safety Report 12187905 (Version 1)
Quarter: 2016Q1

REPORT INFORMATION
  Report Type: Spontaneous
  Country: US (occurrence: None)
  Receive Date: 20160316
  Receipt Date: 20160316
  Transmission Date: 20160526
  Serious: Yes (Life-Threatening, Hospitalization)
  Sender: FDA-Public Use
  Company Number: None

PATIENT
  Age: 69 Year
  Sex: Male

DRUGS (1)
  1. TASIGNA [Suspect]
     Active Substance: NILOTINIB
     Dosage: 2 CAPS QD ORAL
     Route: 048

REACTIONS (2)
  - Cerebrovascular accident [None]
  - Peripheral arterial occlusive disease [None]

NARRATIVE: CASE EVENT DATE: 20160101
